FAERS Safety Report 21619396 (Version 1)
Quarter: 2022Q4

REPORT INFORMATION
  Report Type: Spontaneous
  Country: SE (occurrence: SE)
  Receive Date: 20221120
  Receipt Date: 20221120
  Transmission Date: 20230112
  Serious: Yes (Other)
  Sender: FDA-Public Use
  Company Number: None

PATIENT
  Age: 26 Year
  Sex: Female
  Weight: 61 kg

DRUGS (1)
  1. BUPROPION [Suspect]
     Active Substance: BUPROPION
     Indication: Depression
     Dosage: 150 UMOL, QD (150 MG 1 GANG PER DAG)
     Route: 048
     Dates: start: 20211216, end: 20211222

REACTIONS (4)
  - Hallucination [Unknown]
  - Depersonalisation/derealisation disorder [Unknown]
  - Delusion [Unknown]
  - Abnormal dreams [Unknown]

NARRATIVE: CASE EVENT DATE: 20211218
